FAERS Safety Report 24025041 (Version 4)
Quarter: 2024Q3

REPORT INFORMATION
  Report Type: Report from Study
  Country: CN (occurrence: CN)
  Receive Date: 20240628
  Receipt Date: 20240710
  Transmission Date: 20241017
  Serious: No
  Sender: ROCHE
  Company Number: CN-ROCHE-3332511

PATIENT
  Age: 65 Year
  Sex: Female

DRUGS (2)
  1. ALECTINIB [Suspect]
     Active Substance: ALECTINIB
     Indication: Lung neoplasm malignant
     Dosage: 150MGX224 CAPSULES
     Route: 048
     Dates: start: 20230310
  2. ALECTINIB [Suspect]
     Active Substance: ALECTINIB
     Dosage: 150MGX224 CAPSULES
     Route: 048
     Dates: start: 20230317

REACTIONS (9)
  - Oedema peripheral [Recovering/Resolving]
  - Constipation [Recovering/Resolving]
  - Hair colour changes [Not Recovered/Not Resolved]
  - Alopecia [Not Recovered/Not Resolved]
  - White blood cell disorder [Not Recovered/Not Resolved]
  - Tongue blistering [Not Recovered/Not Resolved]
  - Arthralgia [Recovering/Resolving]
  - Decreased appetite [Recovering/Resolving]
  - Weight increased [Not Recovered/Not Resolved]

NARRATIVE: CASE EVENT DATE: 20230701
